FAERS Safety Report 9572925 (Version 3)
Quarter: 2014Q4

REPORT INFORMATION
  Report Type: Spontaneous
  Country: US (occurrence: US)
  Receive Date: 20131001
  Receipt Date: 20141126
  Transmission Date: 20150529
  Serious: No
  Sender: FDA-Public Use
  Company Number: US-BIOGENIDEC-2013BI068555

PATIENT
  Age: 70 Year
  Sex: Male

DRUGS (16)
  1. TECFIDERA [Suspect]
     Active Substance: DIMETHYL FUMARATE
     Indication: MULTIPLE SCLEROSIS
     Route: 048
     Dates: start: 20130711
  2. DIAZEPAM. [Concomitant]
     Active Substance: DIAZEPAM
  3. AMITIZA [Concomitant]
     Active Substance: LUBIPROSTONE
  4. BACLOFEN. [Concomitant]
     Active Substance: BACLOFEN
  5. LEVOTHYROXINE SODIUM. [Concomitant]
     Active Substance: LEVOTHYROXINE SODIUM
  6. TECFIDERA [Suspect]
     Active Substance: DIMETHYL FUMARATE
     Indication: MULTIPLE SCLEROSIS
     Route: 048
     Dates: start: 20130615
  7. IBUPROFEN. [Concomitant]
     Active Substance: IBUPROFEN
  8. ASPIRIN EC LO-DOSE [Concomitant]
  9. CIALIS [Concomitant]
     Active Substance: TADALAFIL
  10. TERAZOSIN HCL [Concomitant]
     Active Substance: TERAZOSIN HYDROCHLORIDE
  11. DOXAZOSIN MESYLATE. [Concomitant]
     Active Substance: DOXAZOSIN MESYLATE
  12. AMINOGUANIDINE H CARBONATE (NOS) [Concomitant]
  13. CLONAZEPAM. [Concomitant]
     Active Substance: CLONAZEPAM
  14. LISINOPRIL. [Concomitant]
     Active Substance: LISINOPRIL
  15. TIZANIDINE HCL [Concomitant]
     Active Substance: TIZANIDINE HYDROCHLORIDE
  16. LIPITOR [Concomitant]
     Active Substance: ATORVASTATIN CALCIUM

REACTIONS (2)
  - Flushing [Unknown]
  - Headache [Unknown]
